FAERS Safety Report 20446508 (Version 2)
Quarter: 2022Q1

REPORT INFORMATION
  Report Type: Report from Study
  Country: AU (occurrence: AU)
  Receive Date: 20220208
  Receipt Date: 20220216
  Transmission Date: 20220423
  Serious: Yes (Hospitalization)
  Sender: FDA-Public Use
  Company Number: AU-ALXN-A202201371

PATIENT
  Age: 20 Year
  Sex: Female
  Weight: 58 kg

DRUGS (8)
  1. RAVULIZUMAB [Suspect]
     Active Substance: RAVULIZUMAB
     Indication: Neuromyelitis optica spectrum disorder
     Dosage: 2400 MG, UNK
     Route: 042
     Dates: start: 20201008
  2. RAVULIZUMAB [Suspect]
     Active Substance: RAVULIZUMAB
     Dosage: 3300 MG, UNK
     Route: 042
     Dates: start: 20220114
  3. MALTOFER                           /00023548/ [Concomitant]
     Indication: Anaemia
     Dosage: 370 MG, QD
     Route: 048
     Dates: start: 20201215
  4. MINERALS\VITAMINS [Concomitant]
     Active Substance: MINERALS\VITAMINS
     Indication: Supplementation therapy
     Dosage: 1 DF, QD
     Route: 048
     Dates: start: 20210406
  5. MYCOPHENOLIC ACID [Concomitant]
     Active Substance: MYCOPHENOLIC ACID
     Indication: Neuromyelitis optica spectrum disorder
     Dosage: 750 MG, BID
     Route: 048
     Dates: start: 20190726
  6. PREDNISOLONE [Concomitant]
     Active Substance: PREDNISOLONE
     Indication: Neuromyelitis optica spectrum disorder
     Dosage: 5 MG, QD
     Route: 048
     Dates: start: 20200814
  7. SERTRALINE [Concomitant]
     Active Substance: SERTRALINE HYDROCHLORIDE
     Indication: Social anxiety disorder
     Dosage: 200 MG, QD
     Route: 048
     Dates: start: 20211203
  8. PANTOPRAZOLE SODIUM [Concomitant]
     Active Substance: PANTOPRAZOLE SODIUM
     Indication: Gastrointestinal disorder prophylaxis
     Dosage: 20 MG, QD
     Route: 048
     Dates: start: 201909

REACTIONS (1)
  - Meningococcal sepsis [Not Recovered/Not Resolved]

NARRATIVE: CASE EVENT DATE: 20220202
